FAERS Safety Report 7491414-4 (Version None)
Quarter: 2011Q2

REPORT INFORMATION
  Report Type: 
  Country: None (occurrence: None)
  Receive Date: 20110519
  Receipt Date: 20110505
  Transmission Date: 20111010
  Serious: Yes (Hospitalization)
  Sender: FDA-Public Use
  Company Number: PHHY2011BR38486

PATIENT
  Sex: Male

DRUGS (2)
  1. RASILEZ [Suspect]
     Dosage: 300 MG, UNK
  2. RASILEZ [Suspect]
     Dosage: 150 MG, UNK

REACTIONS (5)
  - LUNG DISORDER [None]
  - FATIGUE [None]
  - BLOOD PRESSURE INADEQUATELY CONTROLLED [None]
  - CONFUSIONAL STATE [None]
  - DEPRESSED MOOD [None]
